FAERS Safety Report 5985096-8 (Version None)
Quarter: 2008Q4

REPORT INFORMATION
  Report Type: 
  Country: None (occurrence: None)
  Receive Date: 20081208
  Receipt Date: 20081202
  Transmission Date: 20090506
  Serious: Yes (Death)
  Sender: FDA-Public Use
  Company Number: TR-MERCK-0812TUR00001

PATIENT
  Age: 58 Year
  Sex: Male

DRUGS (4)
  1. CANCIDAS [Suspect]
     Indication: ANTIFUNGAL TREATMENT
     Route: 041
  2. CANCIDAS [Suspect]
     Indication: ASPERGILLOSIS
     Route: 041
  3. INSULIN [Concomitant]
     Indication: DIABETES MELLITUS
     Route: 065
  4. AMPHOTERICIN B AND CHOLESTEROL AND DISTEAROYLPHOSPHATIDYLGLYCEROL AND [Concomitant]
     Route: 065

REACTIONS (1)
  - TREATMENT FAILURE [None]
